FAERS Safety Report 8696123 (Version 2)
Quarter: 2013Q4

REPORT INFORMATION
  Report Type: Spontaneous
  Country: HU (occurrence: HU)
  Receive Date: 20120801
  Receipt Date: 20131031
  Transmission Date: 20140711
  Serious: Yes (Hospitalization)
  Sender: FDA-Public Use
  Company Number: HU-009507513-2011SP059354

PATIENT
  Age: 62 Year
  Sex: Male

DRUGS (6)
  1. VICTRELIS [Suspect]
  2. PEGINTRON [Suspect]
     Indication: CHRONIC HEPATITIS C
     Dosage: 120 ?G, QW
     Route: 058
     Dates: start: 20111002
  3. REBETOL [Suspect]
     Dosage: UNK
  4. ALLOPURINOL [Concomitant]
  5. FAMOTIDINE [Concomitant]
     Dosage: UNK
  6. BEBETINA [Concomitant]
     Dosage: UNK

REACTIONS (3)
  - Febrile neutropenia [Unknown]
  - Bacterial infection [Unknown]
  - Dyspnoea [Unknown]
